FAERS Safety Report 11932031 (Version 1)
Quarter: 2016Q1

REPORT INFORMATION
  Report Type: Spontaneous
  Country: US (occurrence: US)
  Receive Date: 20160120
  Receipt Date: 20160120
  Transmission Date: 20160526
  Serious: No
  Sender: FDA-Public Use
  Company Number: US-PFIZER INC-2015463543

PATIENT
  Age: 43 Year
  Sex: Male

DRUGS (1)
  1. SILVER SULFADIAZENE [Suspect]
     Active Substance: SILVER SULFADIAZINE
     Indication: DIABETIC ULCER
     Dosage: UNK

REACTIONS (1)
  - Drug ineffective for unapproved indication [Unknown]
